FAERS Safety Report 5796187-9 (Version None)
Quarter: 2008Q3

REPORT INFORMATION
  Report Type: 
  Country: None (occurrence: None)
  Receive Date: 20080701
  Receipt Date: 20080617
  Transmission Date: 20090109
  Serious: Yes (Hospitalization)
  Sender: FDA-Public Use
  Company Number: US-ELI_LILLY_AND_COMPANY-US200806004710

PATIENT
  Age: 71 Year
  Sex: Female

DRUGS (3)
  1. GEMZAR [Suspect]
     Indication: UTERINE LEIOMYOSARCOMA
     Dosage: OTHER;DAYS1+8 OVER 90 MINS.
     Route: 042
  2. DOCETAXEL [Concomitant]
     Indication: UTERINE LEIOMYOSARCOMA
     Dosage: OTHER;DAY 8 OF 21 DAY C
  3. DEXAMETHASONE [Concomitant]
     Indication: PREMEDICATION
     Dosage: 2/D FOR THREE DAYS
     Route: 048

REACTIONS (2)
  - PNEUMONIA [None]
  - PULMONARY TOXICITY [None]
